FAERS Safety Report 6816989-7 (Version None)
Quarter: 2010Q3

REPORT INFORMATION
  Report Type: 
  Country: None (occurrence: None)
  Receive Date: 20100706
  Receipt Date: 20100702
  Transmission Date: 20110219
  Serious: Yes (Death, Hospitalization)
  Sender: FDA-Public Use
  Company Number: PHHY2010ES43269

PATIENT
  Sex: Female

DRUGS (2)
  1. EVEROLIMUS [Suspect]
     Dosage: 10 MG PER DAY
     Dates: start: 20100401
  2. SOMATULINE AUTOGEL [Concomitant]

REACTIONS (3)
  - DIARRHOEA [None]
  - MOUTH ULCERATION [None]
  - RENAL FAILURE ACUTE [None]
